FAERS Safety Report 5523855-6 (Version None)
Quarter: 2007Q4

REPORT INFORMATION
  Report Type: 
  Country: None (occurrence: None)
  Receive Date: 20071121
  Receipt Date: 20071115
  Transmission Date: 20080405
  Serious: Yes (Other)
  Sender: FDA-Public Use
  Company Number: IE-SHR-IE-2007-042529

PATIENT
  Age: 66 Year
  Sex: Female

DRUGS (1)
  1. ULTRAVIST 300 [Suspect]
     Indication: COMPUTERISED TOMOGRAM
     Dosage: 100 ML, 1 DOSE
     Route: 042
     Dates: start: 20071105, end: 20071105

REACTIONS (3)
  - EYE SWELLING [None]
  - FLUSHING [None]
  - SWELLING [None]
